FAERS Safety Report 9758422 (Version 1)
Quarter: 2013Q4

REPORT INFORMATION
  Report Type: Spontaneous
  Country: DE (occurrence: DE)
  Receive Date: 20131216
  Receipt Date: 20131216
  Transmission Date: 20140711
  Serious: Yes (Other)
  Sender: FDA-Public Use
  Company Number: DE-OTSUKA-US-2013-12329

PATIENT
  Sex: 0

DRUGS (5)
  1. BUSULFEX [Suspect]
     Indication: ACUTE MYELOID LEUKAEMIA
     Route: 042
  2. CYCLOPHOSPHAMIDE [Suspect]
     Indication: ACUTE MYELOID LEUKAEMIA
     Dosage: 60 MG/KG, QD
  3. CYCLOSPORINE [Concomitant]
     Indication: PRODUCT USED FOR UNKNOWN INDICATION
  4. METHOTREXATE [Concomitant]
     Indication: PRODUCT USED FOR UNKNOWN INDICATION
  5. FOLINIC ACID [Concomitant]
     Indication: PRODUCT USED FOR UNKNOWN INDICATION

REACTIONS (7)
  - Cardiomyopathy [Unknown]
  - Hepatic function abnormal [Unknown]
  - Hepatic cirrhosis [Unknown]
  - Skeletal injury [Unknown]
  - Hormone replacement therapy [Unknown]
  - Chronic graft versus host disease [Unknown]
  - Acute graft versus host disease [Unknown]
